FAERS Safety Report 11235885 (Version 6)
Quarter: 2019Q4

REPORT INFORMATION
  Report Type: Report from Study
  Country: US (occurrence: US)
  Receive Date: 20150702
  Receipt Date: 20191031
  Transmission Date: 20200122
  Serious: Yes (Other)
  Sender: FDA-Public Use
  Company Number: PHHY2015US028491

PATIENT
  Age: 44 Year
  Sex: Female
  Weight: 58.06 kg

DRUGS (1)
  1. GILENYA [Suspect]
     Active Substance: FINGOLIMOD HYDROCHLORIDE
     Indication: RELAPSING-REMITTING MULTIPLE SCLEROSIS
     Dosage: 0.5 MG, QD
     Route: 048
     Dates: start: 20140826

REACTIONS (6)
  - Vision blurred [Unknown]
  - Blood alkaline phosphatase increased [Unknown]
  - Dizziness [Recovered/Resolved]
  - Bradycardia [Recovered/Resolved]
  - Hypersomnia [Not Recovered/Not Resolved]
  - Lymphocyte count decreased [Unknown]

NARRATIVE: CASE EVENT DATE: 20140826
